FAERS Safety Report 7955619-8 (Version None)
Quarter: 2011Q4

REPORT INFORMATION
  Report Type: 
  Country: None (occurrence: None)
  Receive Date: 20111202
  Receipt Date: 20111123
  Transmission Date: 20120403
  Serious: Yes (Hospitalization)
  Sender: FDA-Public Use
  Company Number: US-ASTRAZENECA-2011SE71158

PATIENT
  Age: 60 Year
  Sex: Female

DRUGS (16)
  1. GLYPIAZYDE [Concomitant]
  2. DENOFIBRATE [Concomitant]
  3. IMITREX [Concomitant]
  4. LOTREL [Concomitant]
  5. DRISTOL [Concomitant]
  6. TOPROL-XL [Suspect]
     Route: 048
  7. COUMADIN [Concomitant]
  8. GENOMETH [Concomitant]
  9. DAISA CORT [Concomitant]
  10. CRESTOR [Suspect]
     Route: 048
  11. OMEPRAZOLE [Concomitant]
  12. CLONIDINE [Concomitant]
  13. LOPARIN [Concomitant]
  14. HTCZ [Concomitant]
  15. ZANTAC [Concomitant]
  16. LANTUS [Concomitant]

REACTIONS (3)
  - ATRIAL FIBRILLATION [None]
  - CHEST PAIN [None]
  - PALPITATIONS [None]
